FAERS Safety Report 23097379 (Version 2)
Quarter: 2024Q1

REPORT INFORMATION
  Report Type: Report from Study
  Country: FR (occurrence: FR)
  Receive Date: 20231023
  Receipt Date: 20240102
  Transmission Date: 20240410
  Serious: Yes (Other)
  Sender: FDA-Public Use
  Company Number: FR-BAXTER-2023BAX032483

PATIENT
  Age: 67 Year
  Sex: Male
  Weight: 63 kg

DRUGS (11)
  1. PREDNISONE [Suspect]
     Active Substance: PREDNISONE
     Indication: Diffuse large B-cell lymphoma
     Dosage: QD (EVERY 1 DAYS, ONGOING)
     Route: 048
     Dates: start: 20230908
  2. CYCLOPHOSPHAMIDE [Suspect]
     Active Substance: CYCLOPHOSPHAMIDE
     Indication: Diffuse large B-cell lymphoma
     Dosage: Q3W ( EVERY 3 WEEKS, ONGOING)
     Route: 042
     Dates: start: 20230908
  3. DOXORUBICIN [Suspect]
     Active Substance: DOXORUBICIN
     Indication: Diffuse large B-cell lymphoma
     Dosage: Q3W ( EVERY 3 WEEKS, ONGOING)
     Route: 042
     Dates: start: 20230908
  4. VINCRISTINE [Suspect]
     Active Substance: VINCRISTINE
     Indication: Diffuse large B-cell lymphoma
     Dosage: Q3W (EVERY 3 WEEKS, ONGOING)
     Route: 042
     Dates: start: 20230908
  5. EPCORITAMAB [Suspect]
     Active Substance: EPCORITAMAB
     Indication: Diffuse large B-cell lymphoma
     Dosage: 0.16MILLIGRAM(0.16MG, PRIMING DOSE;C1,D1, TOTAL)
     Route: 058
     Dates: start: 20230908, end: 20230908
  6. EPCORITAMAB [Suspect]
     Active Substance: EPCORITAMAB
     Dosage: 0.8 MG INTERMEDIATE DOSE; C1, D8, TOTAL
     Route: 058
     Dates: start: 20230915, end: 20230915
  7. EPCORITAMAB [Suspect]
     Active Substance: EPCORITAMAB
     Dosage: 48 MILLIGRAM, QW (FULL DOSE; C1, D15)
     Route: 058
     Dates: start: 20230921
  8. RITUXIMAB [Suspect]
     Active Substance: RITUXIMAB
     Indication: Diffuse large B-cell lymphoma
     Dosage: 649 MILLIGRAM, Q3W (EVERY 3 WEEKS, ONGOING)
     Route: 042
     Dates: start: 20230908
  9. POTASSIUM CHLORIDE [Concomitant]
     Active Substance: POTASSIUM CHLORIDE
     Indication: Hypokalaemia
     Dosage: 600 MILLIGRAM, Q8H
     Route: 065
     Dates: start: 20230802
  10. BISOPROLOL FUMARATE [Concomitant]
     Active Substance: BISOPROLOL FUMARATE
     Indication: Hypertension
     Dosage: 2.5 MILLIGRAM, QW
     Route: 065
     Dates: start: 197601
  11. FILGRASTIM [Concomitant]
     Active Substance: FILGRASTIM
     Indication: Neutrophil count decreased
     Dosage: UNK (48 MIU/L, AS NECESSARY)
     Route: 065
     Dates: start: 20230913

REACTIONS (1)
  - Cytokine release syndrome [Not Recovered/Not Resolved]

NARRATIVE: CASE EVENT DATE: 20230922
